FAERS Safety Report 4853871-9 (Version None)
Quarter: 2005Q4

REPORT INFORMATION
  Report Type: 
  Country: None (occurrence: None)
  Receive Date: 20051213
  Receipt Date: 20051202
  Transmission Date: 20060501
  Serious: Yes (Hospitalization, Other)
  Sender: FDA-Public Use
  Company Number: KII-2005-0020032

PATIENT
  Age: 27 Year
  Sex: Male

DRUGS (5)
  1. OXYCODONE HCL [Suspect]
     Indication: INTENTIONAL DRUG MISUSE
     Dosage: ORAL
     Route: 048
  2. COCAINE (COCAINE) [Suspect]
     Indication: INTENTIONAL DRUG MISUSE
  3. BENZODIAZEPINE DERIVATIVES () [Suspect]
     Indication: INTENTIONAL DRUG MISUSE
     Dosage: ORAL
     Route: 048
  4. OPIOIDS () [Suspect]
     Indication: INTENTIONAL DRUG MISUSE
     Dosage: ORAL
     Route: 048
  5. ETHANOL (ETHANOL) [Suspect]

REACTIONS (5)
  - BLOOD ETHANOL INCREASED [None]
  - COMA [None]
  - POLYSUBSTANCE ABUSE [None]
  - SINUS TACHYCARDIA [None]
  - VOMITING [None]
